FAERS Safety Report 15082690 (Version 1)
Quarter: 2018Q3

REPORT INFORMATION
  Report Type: Spontaneous
  Country: FR (occurrence: FR)
  Receive Date: 20180628
  Receipt Date: 20180628
  Transmission Date: 20181010
  Serious: Yes (Hospitalization, Other)
  Sender: FDA-Public Use
  Company Number: FR-MYLANLABS-2018M1044513

PATIENT
  Age: 89 Year
  Sex: Female

DRUGS (4)
  1. ATORVASTATIN MYLAN [Suspect]
     Active Substance: ATORVASTATIN
     Indication: ISCHAEMIC HEART DISEASE PROPHYLAXIS
     Dosage: UNK
     Route: 048
  2. MOLSIDOMINE MYLAN [Interacting]
     Active Substance: MOLSIDOMINE
     Indication: MYOCARDIAL ISCHAEMIA
     Dosage: UNK
     Route: 048
  3. ACEBUTOLOL [Interacting]
     Active Substance: ACEBUTOLOL
     Indication: MYOCARDIAL ISCHAEMIA
     Dosage: 1 UNK, QD (0.5CP)
     Route: 048
  4. RISPERIDONE MYLAN [Interacting]
     Active Substance: RISPERIDONE
     Indication: PSYCHOTIC DISORDER
     Dosage: 0.5 MG, QD
     Route: 048
     Dates: start: 2018, end: 20180308

REACTIONS (4)
  - Rhabdomyolysis [Recovering/Resolving]
  - Drug interaction [Unknown]
  - Renal failure [Recovered/Resolved]
  - Fall [Recovered/Resolved]

NARRATIVE: CASE EVENT DATE: 201803
